FAERS Safety Report 23461491 (Version 1)
Quarter: 2024Q1

REPORT INFORMATION
  Report Type: Spontaneous
  Country: GB (occurrence: GB)
  Receive Date: 20240131
  Receipt Date: 20240131
  Transmission Date: 20240410
  Serious: Yes (Hospitalization)
  Sender: FDA-Public Use
  Company Number: None

PATIENT
  Age: 11 Year
  Sex: Female
  Weight: 33 kg

DRUGS (2)
  1. VORICONAZOLE [Suspect]
     Active Substance: VORICONAZOLE
     Indication: Fungal infection
     Dosage: 300 MG (ALSO REPORTED AS 9 MG/KG), BD
     Route: 048
     Dates: start: 20240109, end: 20240114
  2. VORICONAZOLE [Suspect]
     Active Substance: VORICONAZOLE
     Dosage: 250 MG (ALSO REPORTED AS 6 MG/KG), BD FOLLOWING HIGH LEVEL
     Dates: start: 20240114, end: 20240122

REACTIONS (9)
  - Rash [Recovering/Resolving]
  - Cheilitis [Recovering/Resolving]
  - Abdominal pain upper [Recovering/Resolving]
  - Nausea [Unknown]
  - Vomiting [Unknown]
  - Diarrhoea [Unknown]
  - Oropharyngeal pain [Unknown]
  - Oral pain [Unknown]
  - Dysphagia [Unknown]

NARRATIVE: CASE EVENT DATE: 20240110
